FAERS Safety Report 6427156-3 (Version None)
Quarter: 2009Q4

REPORT INFORMATION
  Report Type: 
  Country: None (occurrence: None)
  Receive Date: 20091104
  Receipt Date: 20091021
  Transmission Date: 20100525
  Serious: Yes (Hospitalization)
  Sender: FDA-Public Use
  Company Number: JP-GENENTECH-293179

PATIENT
  Sex: Male

DRUGS (3)
  1. BEVACIZUMAB [Suspect]
     Indication: COLORECTAL CANCER METASTATIC
     Dosage: 320 MG, Q2W
     Route: 041
     Dates: start: 20080115, end: 20090925
  2. IRINOTECAN HCL [Suspect]
     Indication: COLORECTAL CANCER METASTATIC
     Dosage: 160 MG, Q2W
     Route: 041
     Dates: start: 20080112, end: 20090925
  3. TS-1 [Suspect]
     Indication: COLORECTAL CANCER METASTATIC
     Dosage: 50 MG, Q2W
     Route: 048
     Dates: start: 20080115, end: 20090925

REACTIONS (1)
  - ENTEROCOLITIS [None]
